FAERS Safety Report 17766162 (Version 2)
Quarter: 2020Q2

REPORT INFORMATION
  Report Type: Report from Study
  Country: US (occurrence: US)
  Receive Date: 20200511
  Receipt Date: 20200615
  Transmission Date: 20200714
  Serious: Yes (Death, Life-Threatening, Hospitalization, Other)
  Sender: FDA-Public Use
  Company Number: US-ASTRAZENECA-2019SE41121

PATIENT
  Age: 75 Year
  Sex: Male

DRUGS (76)
  1. PREDNISONE. [Concomitant]
     Active Substance: PREDNISONE
     Indication: MYOSITIS
     Route: 048
     Dates: start: 20190316, end: 20190419
  2. PREDNISONE. [Concomitant]
     Active Substance: PREDNISONE
     Indication: PNEUMONITIS
     Route: 048
     Dates: start: 20190316, end: 20190419
  3. PREDNISONE. [Concomitant]
     Active Substance: PREDNISONE
     Indication: MYOSITIS
     Route: 048
     Dates: start: 20190422, end: 20190423
  4. LABETALOL [Concomitant]
     Active Substance: LABETALOL\LABETALOL HYDROCHLORIDE
     Indication: HYPERTENSION
     Route: 042
     Dates: start: 20190319, end: 20190319
  5. FENTANYL. [Concomitant]
     Active Substance: FENTANYL
     Indication: MYOSITIS
     Route: 042
     Dates: start: 20190312, end: 20190316
  6. AZITHROMYCIN ANHYDROUS. [Concomitant]
     Active Substance: AZITHROMYCIN ANHYDROUS
     Indication: INFECTION PROPHYLAXIS
     Route: 042
     Dates: start: 20190319, end: 20190322
  7. VANCOMYCIN [Concomitant]
     Active Substance: VANCOMYCIN
     Indication: INFECTION PROPHYLAXIS
     Route: 042
     Dates: start: 20190318, end: 20190413
  8. ONDANSETRON [Concomitant]
     Active Substance: ONDANSETRON
     Indication: NAUSEA
     Route: 042
     Dates: start: 20190311, end: 20190319
  9. AMPHOTERICIN B. [Concomitant]
     Active Substance: AMPHOTERICIN B
     Indication: PNEUMONIA
     Route: 042
     Dates: start: 20190319, end: 20190326
  10. PHENYLEPHRINE [Concomitant]
     Active Substance: PHENYLEPHRINE HYDROCHLORIDE
     Indication: ANAESTHESIA
     Route: 042
     Dates: start: 20190318, end: 20190319
  11. PREDNISONE. [Concomitant]
     Active Substance: PREDNISONE
     Indication: PNEUMONITIS
     Route: 048
     Dates: start: 20190424, end: 20190428
  12. PREDNISONE. [Concomitant]
     Active Substance: PREDNISONE
     Indication: MYOSITIS
     Route: 048
     Dates: start: 20190420, end: 20190421
  13. MORPHINE [Concomitant]
     Active Substance: MORPHINE
     Indication: MYOSITIS
     Route: 042
     Dates: start: 20190311, end: 20190312
  14. FLUCONAZOLE. [Concomitant]
     Active Substance: FLUCONAZOLE
     Indication: PNEUMONIA FUNGAL
     Route: 048
     Dates: start: 20190325, end: 20190326
  15. AMPHOTERICIN B LIPOSOME ( AMBISOME) [Concomitant]
     Indication: PNEUMONIA
     Route: 042
     Dates: start: 20190322, end: 20190402
  16. PANTOPRAZOLE SODIUM. [Concomitant]
     Active Substance: PANTOPRAZOLE SODIUM
     Indication: GASTROOESOPHAGEAL REFLUX DISEASE
     Route: 048
     Dates: start: 20190312
  17. ONDANSETRON [Concomitant]
     Active Substance: ONDANSETRON
     Indication: VOMITING
     Route: 042
     Dates: start: 20190311, end: 20190319
  18. COLACE [Concomitant]
     Active Substance: DOCUSATE SODIUM
     Indication: CONSTIPATION
     Route: 048
     Dates: start: 20190316
  19. DIPHENHYDRAMINE HCL [Concomitant]
     Active Substance: DIPHENHYDRAMINE HYDROCHLORIDE
     Indication: PRURITUS
     Route: 048
     Dates: start: 20190322
  20. HUMULIN NOS [Concomitant]
     Active Substance: INSULIN HUMAN
     Indication: DIABETES MELLITUS
     Route: 058
     Dates: start: 2012
  21. ASPIRIN. [Concomitant]
     Active Substance: ASPIRIN
     Indication: CARDIAC DISORDER
     Route: 048
     Dates: start: 2014
  22. MELATONIN [Concomitant]
     Active Substance: MELATONIN
     Indication: INSOMNIA
     Route: 048
     Dates: start: 20190312
  23. LUMASON [Concomitant]
     Active Substance: SULFUR HEXAFLUORIDE
     Indication: CARDIOVASCULAR EVENT PROPHYLAXIS
     Route: 042
     Dates: start: 20190313, end: 20190313
  24. LIDOCAINE. [Concomitant]
     Active Substance: LIDOCAINE
     Indication: ANAESTHESIA
     Route: 042
     Dates: start: 20190319, end: 20190319
  25. OXYCODONE IR [Concomitant]
     Active Substance: OXYCODONE
     Indication: PAIN
     Route: 048
     Dates: start: 20190311
  26. ACETAMINOPHEN. [Concomitant]
     Active Substance: ACETAMINOPHEN
     Indication: MYOSITIS
     Route: 048
     Dates: start: 20190325
  27. HUMALOG [Concomitant]
     Active Substance: INSULIN LISPRO
     Indication: DIABETES MELLITUS
     Route: 048
     Dates: start: 2009
  28. EPHEDRINE. [Concomitant]
     Active Substance: EPHEDRINE
     Indication: ANAESTHESIA
     Route: 042
     Dates: start: 20190318, end: 20190318
  29. ALBUTEROL ( ACCUNEB) [Concomitant]
     Indication: DYSPNOEA
     Route: 055
     Dates: start: 20190316, end: 20190319
  30. NITROGLYCERIN. [Concomitant]
     Active Substance: NITROGLYCERIN
     Indication: CHEST PAIN
     Route: 060
     Dates: start: 20190313
  31. IPRATROPIUM BROMIDE/ALBUTEROL ( DUONEB 0.5-2.5 MG/3 ML ) [Concomitant]
     Indication: DYSPNOEA
     Route: 055
     Dates: start: 20190320, end: 20190429
  32. TRAMADOL. [Concomitant]
     Active Substance: TRAMADOL
     Indication: MUSCULOSKELETAL PAIN
     Route: 048
     Dates: start: 20190306
  33. TYLENOL [Concomitant]
     Active Substance: ACETAMINOPHEN
     Indication: ABDOMINAL PAIN
     Route: 048
     Dates: start: 201806
  34. PRILOSEC [Concomitant]
     Active Substance: OMEPRAZOLE MAGNESIUM
     Indication: GASTROOESOPHAGEAL REFLUX DISEASE
     Route: 048
     Dates: start: 2011
  35. MEDI4736 [Suspect]
     Active Substance: DURVALUMAB
     Indication: HEPATOCELLULAR CARCINOMA
     Route: 042
     Dates: start: 20190128
  36. LORAZEPAM. [Concomitant]
     Active Substance: LORAZEPAM
     Indication: ANXIETY
     Route: 048
     Dates: start: 20190313, end: 20190428
  37. BISACODYL ( DULCOLAX) [Concomitant]
     Indication: CONSTIPATION
     Route: 054
     Dates: start: 20190317, end: 20190317
  38. LIDOCAINE ( LIDODERM) PATCH [Concomitant]
     Indication: MYOSITIS
     Route: 062
     Dates: start: 20190428, end: 20190429
  39. NOVOLOG [Concomitant]
     Active Substance: INSULIN ASPART
     Indication: DIABETES MELLITUS
     Route: 058
     Dates: start: 20190312, end: 20190428
  40. LORAZEPAM. [Concomitant]
     Active Substance: LORAZEPAM
     Indication: ANXIETY
     Route: 048
     Dates: start: 20190313, end: 20190429
  41. FLUCONAZOLE. [Concomitant]
     Active Substance: FLUCONAZOLE
     Indication: PNEUMONIA FUNGAL
     Route: 048
     Dates: start: 20190421, end: 20190422
  42. ITRACONAZOLE. [Concomitant]
     Active Substance: ITRACONAZOLE
     Indication: PNEUMONIA
     Route: 048
     Dates: start: 20190315, end: 20190319
  43. PROCHLORPERAZINE. [Concomitant]
     Active Substance: PROCHLORPERAZINE
     Indication: NAUSEA
     Route: 042
     Dates: start: 20190319, end: 20190415
  44. NARCAN [Concomitant]
     Active Substance: NALOXONE HYDROCHLORIDE
     Indication: RESPIRATORY DEPRESSION
     Route: 042
     Dates: start: 20190311
  45. HYDROCORTISONE. [Concomitant]
     Active Substance: HYDROCORTISONE
     Indication: PRURITUS
     Route: 061
     Dates: start: 20190323
  46. TIZANIDINE. [Concomitant]
     Active Substance: TIZANIDINE
     Indication: MUSCLE SPASMS
     Route: 048
     Dates: start: 2012
  47. COENZYME Q10 [Concomitant]
     Active Substance: UBIDECARENONE
     Indication: ROUTINE HEALTH MAINTENANCE
     Route: 048
     Dates: start: 2014, end: 20190118
  48. PROZAC [Concomitant]
     Active Substance: FLUOXETINE HYDROCHLORIDE
     Indication: DEPRESSION
     Route: 048
     Dates: start: 201805
  49. PROPOFOL. [Concomitant]
     Active Substance: PROPOFOL
     Indication: ANAESTHESIA
     Route: 042
     Dates: start: 20190318, end: 20190319
  50. PANTOPRAZOLE [Concomitant]
     Active Substance: PANTOPRAZOLE
     Indication: GASTROOESOPHAGEAL REFLUX DISEASE
     Route: 042
     Dates: start: 20190312, end: 20190428
  51. LIDOCAINE. [Concomitant]
     Active Substance: LIDOCAINE
     Indication: ANAESTHESIA
     Route: 042
     Dates: start: 20190319, end: 20190319
  52. PREDNISONE. [Concomitant]
     Active Substance: PREDNISONE
     Indication: MYOSITIS
     Route: 048
     Dates: start: 20190424, end: 20190428
  53. PREDNISONE. [Concomitant]
     Active Substance: PREDNISONE
     Indication: PNEUMONITIS
     Route: 048
     Dates: start: 20190422, end: 20190423
  54. FENTANYL. [Concomitant]
     Active Substance: FENTANYL
     Indication: MYOSITIS
     Route: 042
     Dates: start: 20190412, end: 20190412
  55. AZTREONAM. [Concomitant]
     Active Substance: AZTREONAM
     Indication: INFECTION PROPHYLAXIS
     Route: 042
     Dates: start: 20190319, end: 20190322
  56. BACTRIM 800-160( SULFAMETHOXAZOLE-TRIMET HOPRIM) [Concomitant]
     Indication: PNEUMOCYSTIS JIROVECII PNEUMONIA
     Route: 048
     Dates: start: 20190318, end: 20190428
  57. BACITRACIN. [Concomitant]
     Active Substance: BACITRACIN
     Indication: PNEUMONIA
     Route: 042
     Dates: start: 20190318, end: 20190318
  58. LOSARTAN. [Concomitant]
     Active Substance: LOSARTAN
     Indication: HYPERTENSION
     Route: 048
     Dates: start: 2009
  59. CHOLECALCIFEROL [Concomitant]
     Active Substance: CHOLECALCIFEROL
     Indication: ROUTINE HEALTH MAINTENANCE
     Route: 048
     Dates: start: 2017
  60. ATORVASTATIN [Concomitant]
     Active Substance: ATORVASTATIN
     Indication: HYPERLIPIDAEMIA
     Route: 048
     Dates: start: 2005
  61. MEDI4736 [Suspect]
     Active Substance: DURVALUMAB
     Indication: HEPATOCELLULAR CARCINOMA
     Route: 042
     Dates: start: 20190225
  62. PREDNISONE. [Concomitant]
     Active Substance: PREDNISONE
     Indication: PNEUMONITIS
     Route: 048
     Dates: start: 20190420, end: 20190421
  63. FAMOTIDINE. [Concomitant]
     Active Substance: FAMOTIDINE
     Indication: PREMEDICATION
     Route: 042
     Dates: start: 20190319, end: 20190319
  64. SUDAFED ( PSEUDOEPHEDRINE) [Concomitant]
     Indication: COUGH
     Route: 048
     Dates: start: 20190402, end: 20190409
  65. SENNOSIDES ( SENOKOT) [Concomitant]
     Indication: CONSTIPATION
     Route: 048
     Dates: start: 20190316, end: 20190428
  66. LOVENOX [Concomitant]
     Active Substance: ENOXAPARIN SODIUM
     Indication: THROMBOSIS PROPHYLAXIS
     Route: 058
     Dates: start: 20190311
  67. SYMBICORT (BUDESONIDE-FORMOTEROL 80-4.5 MCG) [Concomitant]
     Indication: DYSPNOEA
     Route: 055
     Dates: start: 20190313
  68. TRAMADOL. [Concomitant]
     Active Substance: TRAMADOL
     Indication: NECK PAIN
     Route: 048
     Dates: start: 20190306
  69. NIZORAL [Concomitant]
     Active Substance: KETOCONAZOLE
     Indication: BODY TINEA
     Route: 062
     Dates: start: 2017
  70. LOVASTATIN. [Concomitant]
     Active Substance: LOVASTATIN
     Indication: HYPERLIPIDAEMIA
     Route: 048
     Dates: start: 201706
  71. FLOMAX [Concomitant]
     Active Substance: TAMSULOSIN HYDROCHLORIDE
     Indication: BENIGN PROSTATIC HYPERPLASIA
     Route: 048
     Dates: start: 2014
  72. FINASTERIDE. [Concomitant]
     Active Substance: FINASTERIDE
     Indication: BENIGN PROSTATIC HYPERPLASIA
     Route: 048
     Dates: start: 201801
  73. MIRTAZEPINE ( REMERON) [Concomitant]
     Indication: ANXIETY
     Route: 048
     Dates: start: 20190323, end: 20190428
  74. PROPOFOL. [Concomitant]
     Active Substance: PROPOFOL
     Indication: ANAESTHESIA
     Route: 042
     Dates: start: 20190413, end: 20190413
  75. LIDOCAINE. [Concomitant]
     Active Substance: LIDOCAINE
     Indication: ANAESTHESIA
     Route: 042
     Dates: start: 20190318, end: 20190319
  76. LIDOCAINE. [Concomitant]
     Active Substance: LIDOCAINE
     Indication: ANAESTHESIA
     Route: 042
     Dates: start: 20190318, end: 20190319

REACTIONS (4)
  - Myocarditis [Not Recovered/Not Resolved]
  - Pneumonitis [Fatal]
  - Myositis [Not Recovered/Not Resolved]
  - Myasthenia gravis [Not Recovered/Not Resolved]

NARRATIVE: CASE EVENT DATE: 20190311
